FAERS Safety Report 5083087-5 (Version None)
Quarter: 2006Q3

REPORT INFORMATION
  Report Type: 
  Country: None (occurrence: None)
  Receive Date: 20060814
  Receipt Date: 20060801
  Transmission Date: 20061208
  Serious: Yes (Other)
  Sender: FDA-Public Use
  Company Number: 2006094551

PATIENT
  Age: 81 Year
  Sex: Male
  Weight: 56 kg

DRUGS (7)
  1. LIPITOR [Suspect]
     Indication: HYPERCHOLESTEROLAEMIA
     Dosage: 10 MG (10 MG, 1 IN 1 D), ORAL
     Route: 048
     Dates: start: 20060529, end: 20060715
  2. TOLTERODINE TARTRATE [Suspect]
     Indication: DRUG USE FOR UNKNOWN INDICATION
     Dosage: ORAL
     Route: 048
  3. LASIX [Concomitant]
  4. ARCOXIA [Concomitant]
  5. DIOVAN [Concomitant]
  6. CALTRATE PLUS (CALCIUM, COLECALCIFEROL, COPPER, MAGNESIUM, MANGANESE, [Concomitant]
  7. PHARMATON (CAFFEINE, DISODIUM METHANEARSONATE, NICOTINAMIDE, PYRIDOXIN [Concomitant]

REACTIONS (3)
  - ALOPECIA [None]
  - BURNING SENSATION [None]
  - RASH PRURITIC [None]
